FAERS Safety Report 23668472 (Version 1)
Quarter: 2024Q1

REPORT INFORMATION
  Report Type: Spontaneous
  Country: US (occurrence: US)
  Receive Date: 20240325
  Receipt Date: 20240325
  Transmission Date: 20240409
  Serious: Yes (Hospitalization, Other)
  Sender: FDA-Public Use
  Company Number: US-AMGEN-USASP2024059061

PATIENT
  Age: 65 Year
  Sex: Male

DRUGS (4)
  1. BEVACIZUMAB [Suspect]
     Active Substance: BEVACIZUMAB
     Indication: Hepatocellular carcinoma
     Dosage: UNK
     Route: 065
  2. ATEZOLIZUMAB [Suspect]
     Active Substance: ATEZOLIZUMAB
     Indication: Hepatocellular carcinoma
     Dosage: UNK
     Route: 065
  3. GLECAPREVIR [Concomitant]
     Active Substance: GLECAPREVIR
     Indication: Hepatitis C
     Dosage: UNK
     Route: 065
  4. PIBRENTASVIR [Concomitant]
     Active Substance: PIBRENTASVIR
     Indication: Hepatitis C
     Dosage: UNK
     Route: 065

REACTIONS (2)
  - Immune thrombocytopenia [Recovered/Resolved]
  - Off label use [Unknown]
